FAERS Safety Report 11264563 (Version 2)
Quarter: 2016Q2

REPORT INFORMATION
  Report Type: Spontaneous
  Country: DK (occurrence: DK)
  Receive Date: 20150713
  Receipt Date: 20160531
  Transmission Date: 20160815
  Serious: Yes (Death, Life-Threatening)
  Sender: FDA-Public Use
  Company Number: DK-AMGEN-DNKSP2015069152

PATIENT
  Age: 70 Year
  Sex: Male

DRUGS (6)
  1. SIMVASTATIN. [Concomitant]
     Active Substance: SIMVASTATIN
     Indication: HYPERCHOLESTEROLAEMIA
     Dosage: 40 MG, 1X/DAY
     Route: 048
     Dates: start: 20150722, end: 20150807
  2. TRADOLAN [Concomitant]
     Active Substance: TRAMADOL
     Dosage: 50 MG, AS NEEDED
     Route: 048
     Dates: start: 20150609, end: 20150722
  3. IMOZOP [Concomitant]
     Active Substance: ZOPICLONE
     Indication: INSOMNIA
     Dosage: UNK
  4. ENBREL [Suspect]
     Active Substance: ETANERCEPT
     Indication: RHEUMATOID ARTHRITIS
     Dosage: 50 MG, WEEKLY
     Route: 058
     Dates: start: 2005
  5. IMOZOP [Concomitant]
     Active Substance: ZOPICLONE
     Dosage: 3.75 MG IN THE EVENING
     Route: 048
  6. TRADOLAN [Concomitant]
     Active Substance: TRAMADOL
     Indication: PAIN
     Dosage: UNK

REACTIONS (7)
  - Weight decreased [Unknown]
  - Feeding disorder [Unknown]
  - Arthralgia [Unknown]
  - Back pain [Unknown]
  - Metastases to bone [Fatal]
  - Oesophageal cancer metastatic [Fatal]
  - Pain in extremity [Unknown]

NARRATIVE: CASE EVENT DATE: 2015
